FAERS Safety Report 7974788-7 (Version None)
Quarter: 2011Q4

REPORT INFORMATION
  Report Type: 
  Country: None (occurrence: None)
  Receive Date: 20111213
  Receipt Date: 20111207
  Transmission Date: 20120403
  Serious: Yes (Other)
  Sender: FDA-Public Use
  Company Number: PHHY2011US34345

PATIENT
  Sex: Female

DRUGS (1)
  1. EXTAVIA [Suspect]
     Indication: MULTIPLE SCLEROSIS
     Dosage: 0.25 MG, QOD
     Route: 058
     Dates: start: 20100331

REACTIONS (7)
  - VISUAL IMPAIRMENT [None]
  - LETHARGY [None]
  - INFLAMMATION [None]
  - OCULAR HYPERAEMIA [None]
  - CHEST PAIN [None]
  - GLAUCOMA [None]
  - GAIT DISTURBANCE [None]
